FAERS Safety Report 6166544-X (Version None)
Quarter: 2009Q2

REPORT INFORMATION
  Report Type: 
  Country: None (occurrence: None)
  Receive Date: 20090424
  Receipt Date: 20090415
  Transmission Date: 20091009
  Serious: Yes (Other)
  Sender: FDA-Public Use
  Company Number: BR-ROCHE-627995

PATIENT
  Age: 65 Year
  Sex: Female

DRUGS (2)
  1. BONIVA [Suspect]
     Indication: OSTEOPOROSIS
     Dosage: START DATE: 2009
     Route: 048
  2. CALCIUM [Concomitant]

REACTIONS (3)
  - BLOOD URINE PRESENT [None]
  - CARDIAC DISORDER [None]
  - OCCULT BLOOD [None]
